FAERS Safety Report 24124131 (Version 2)
Quarter: 2024Q4

REPORT INFORMATION
  Report Type: Report from Study
  Country: CA (occurrence: CA)
  Receive Date: 20240723
  Receipt Date: 20241220
  Transmission Date: 20250114
  Serious: Yes (Hospitalization, Other)
  Sender: SANDOZ
  Company Number: CA-SANDOZ-SDZ2024CA043036

PATIENT
  Age: 76 Year
  Sex: Male

DRUGS (8)
  1. RITUXIMAB [Suspect]
     Active Substance: RITUXIMAB
     Dosage: 375 MG/M2;WEEKLY X 2 WEEKS
     Route: 042
     Dates: start: 20240510
  2. RITUXIMAB [Suspect]
     Active Substance: RITUXIMAB
     Dosage: 885 MG
     Route: 042
     Dates: start: 20240510
  3. RITUXIMAB [Suspect]
     Active Substance: RITUXIMAB
     Dosage: 885 MG
     Route: 065
  4. RITUXIMAB [Suspect]
     Active Substance: RITUXIMAB
     Dosage: 375 MG/M2 = 885 MG;WEEKLY X 4 WEEKS
     Route: 065
     Dates: start: 20240510
  5. RITUXIMAB [Suspect]
     Active Substance: RITUXIMAB
     Indication: Immune thrombocytopenia
     Dosage: 375 MG/M2, QW (FOR 4 WEEKS)
     Route: 042
  6. RITUXIMAB [Suspect]
     Active Substance: RITUXIMAB
     Dosage: NULL;OTHER 1 EVERY 4 WEEKS
     Route: 042
     Dates: start: 20240510
  7. AMIODARONE HYDROCHLORIDE [Suspect]
     Active Substance: AMIODARONE HYDROCHLORIDE
     Indication: Product used for unknown indication
     Dosage: UNK
     Route: 065
  8. ROSUVASTATIN CALCIUM [Suspect]
     Active Substance: ROSUVASTATIN CALCIUM
     Indication: Product used for unknown indication
     Dosage: UNK
     Route: 065

REACTIONS (11)
  - Acute kidney injury [Recovered/Resolved]
  - Hypotension [Unknown]
  - Peripheral swelling [Recovered/Resolved]
  - Off label use [Unknown]
  - Weight bearing difficulty [Unknown]
  - Asthenia [Unknown]
  - Myopathy [Recovered/Resolved]
  - Sensory loss [Unknown]
  - Muscular weakness [Unknown]
  - Off label use [Unknown]
  - Inappropriate schedule of product administration [Unknown]

NARRATIVE: CASE EVENT DATE: 20240421
